FAERS Safety Report 23870607 (Version 2)
Quarter: 2024Q2

REPORT INFORMATION
  Report Type: Report from Study
  Country: JP (occurrence: JP)
  Receive Date: 20240518
  Receipt Date: 20240629
  Transmission Date: 20240716
  Serious: Yes (Hospitalization)
  Sender: FDA-Public Use
  Company Number: JP-ARGENX-2023-ARGX-JP001382AA

PATIENT

DRUGS (12)
  1. EFGARTIGIMOD ALFA [Suspect]
     Active Substance: EFGARTIGIMOD ALFA
     Indication: Myasthenia gravis
     Dosage: 800 MG
     Route: 042
     Dates: start: 202211
  2. EFGARTIGIMOD ALFA [Suspect]
     Active Substance: EFGARTIGIMOD ALFA
     Dosage: 800 MG
     Route: 042
     Dates: start: 20230501, end: 20230522
  3. EFGARTIGIMOD ALFA [Suspect]
     Active Substance: EFGARTIGIMOD ALFA
     Dosage: 800 MG
     Route: 042
     Dates: start: 20230626, end: 20230718
  4. EFGARTIGIMOD ALFA [Suspect]
     Active Substance: EFGARTIGIMOD ALFA
     Dosage: 800 MG
     Route: 042
     Dates: start: 20230814, end: 20230904
  5. EFGARTIGIMOD ALFA [Suspect]
     Active Substance: EFGARTIGIMOD ALFA
     Dosage: 800 MG
     Route: 042
     Dates: start: 20231002, end: 20231023
  6. EFGARTIGIMOD ALFA [Suspect]
     Active Substance: EFGARTIGIMOD ALFA
     Dosage: 800 MG
     Route: 042
     Dates: start: 20231120, end: 20231211
  7. EFGARTIGIMOD ALFA [Suspect]
     Active Substance: EFGARTIGIMOD ALFA
     Dosage: 800 MG
     Route: 042
     Dates: start: 20240122, end: 20240213
  8. PREDONINE [Concomitant]
     Active Substance: PREDNISOLONE
     Indication: Myasthenia gravis
     Dosage: 12 MG
     Route: 048
     Dates: end: 20230928
  9. PREDONINE [Concomitant]
     Active Substance: PREDNISOLONE
     Dosage: 16 MG
     Route: 048
     Dates: start: 20230929, end: 20231207
  10. PREDONINE [Concomitant]
     Active Substance: PREDNISOLONE
     Dosage: 18 MG
     Route: 048
     Dates: start: 20231208, end: 20240324
  11. PREDONINE [Concomitant]
     Active Substance: PREDNISOLONE
     Dosage: 15 MG
     Route: 048
     Dates: start: 20240325
  12. TACROLIMUS [Concomitant]
     Active Substance: TACROLIMUS
     Indication: Myasthenia gravis
     Dosage: 3 MG
     Route: 048

REACTIONS (6)
  - Myasthenia gravis [Recovering/Resolving]
  - Myasthenia gravis [Recovering/Resolving]
  - COVID-19 [Recovered/Resolved]
  - Jugular vein thrombosis [Unknown]
  - Therapeutic product effect incomplete [Unknown]
  - Overdose [Unknown]

NARRATIVE: CASE EVENT DATE: 20230501
